FAERS Safety Report 7114077-6 (Version None)
Quarter: 2010Q4

REPORT INFORMATION
  Report Type: 
  Country: None (occurrence: None)
  Receive Date: 20101119
  Receipt Date: 20101115
  Transmission Date: 20110411
  Serious: Yes (Life-Threatening, Other)
  Sender: FDA-Public Use
  Company Number: US-SANOFI-AVENTIS-2010SA062365

PATIENT
  Age: 72 Year
  Sex: Male
  Weight: 103.41 kg

DRUGS (7)
  1. LANTUS [Suspect]
     Indication: TYPE 2 DIABETES MELLITUS
     Dosage: DOSE:64 UNIT(S)
     Route: 058
  2. LANTUS [Suspect]
     Dosage: 25-30 UNITS DAILY
     Route: 058
  3. LANTUS [Suspect]
     Dosage: 30-32 UNITS QD
     Route: 058
     Dates: start: 20040101
  4. PLAVIX [Suspect]
     Route: 048
     Dates: start: 20090601, end: 20101007
  5. PLAVIX [Suspect]
     Route: 048
     Dates: start: 20090601, end: 20101007
  6. NOVOLOG [Suspect]
     Indication: TYPE 2 DIABETES MELLITUS
     Dosage: 10/12 UNITS 3 TIMES A DAY
     Route: 058
  7. ADVAIR DISKUS 100/50 [Concomitant]
     Indication: EMPHYSEMA
     Dosage: 2 PUFFS 2 TIMES A DAY DOSE:2 PUFF(S)
     Route: 055
     Dates: start: 20050101

REACTIONS (5)
  - HEART RATE IRREGULAR [None]
  - INJECTION SITE ERYTHEMA [None]
  - MYOCARDIAL INFARCTION [None]
  - PSORIASIS [None]
  - RASH ERYTHEMATOUS [None]
